FAERS Safety Report 7298519-1 (Version None)
Quarter: 2011Q1

REPORT INFORMATION
  Report Type: 
  Country: None (occurrence: None)
  Receive Date: 20110217
  Receipt Date: 20110125
  Transmission Date: 20110831
  Serious: No
  Sender: FDA-Public Use
  Company Number: US-B.I. PHARMACEUTICALS,INC./RIDGEFIELD-2011-BP-02650BP

PATIENT
  Sex: Male

DRUGS (5)
  1. PRADAXA [Suspect]
     Indication: ATRIAL FIBRILLATION
     Dosage: 300 MG
     Route: 048
     Dates: start: 20110101
  2. SIMVASTATIN [Concomitant]
     Indication: PROPHYLAXIS
  3. LISINOPRIL [Concomitant]
     Indication: ATRIAL FIBRILLATION
  4. CARVEDILOL [Concomitant]
     Indication: ATRIAL FIBRILLATION
  5. DIGOXIN [Concomitant]
     Indication: ATRIAL FIBRILLATION

REACTIONS (1)
  - THROAT IRRITATION [None]
